FAERS Safety Report 5771961-3 (Version None)
Quarter: 2008Q2

REPORT INFORMATION
  Report Type: 
  Country: None (occurrence: None)
  Receive Date: 20080611
  Receipt Date: 20080524
  Transmission Date: 20081010
  Serious: Yes (Other)
  Sender: FDA-Public Use
  Company Number: DSJ-2007-06828

PATIENT
  Age: 62 Year
  Sex: Male
  Weight: 60 kg

DRUGS (9)
  1. OLMETEC (OLMESARTAN MEDOXOMIL) (TABLETS) (OLMESARTAN MEDOXOMIL) [Suspect]
     Indication: ESSENTIAL HYPERTENSION
     Dosage: 20  MG (20 MG, 1 IN 1 D), PER ORAL
     Route: 048
     Dates: start: 20060529
  2. AMLODIPINE [Suspect]
     Dosage: 5 MG (5 MG, 1 IN 1 D), PER ORAL
     Route: 048
     Dates: start: 20060508
  3. LARILUDON (ENALAPRIL MALEATE) ENALAPRIL MALEATE) [Concomitant]
  4. FLUITRAN (TRICHLORMETHIAZIDE( (TRICHLORMETHIAZIDE) [Concomitant]
  5. BAYASPIRIN (ACETYLSALICYLIC ACID) (ACETYLSALICYLIC ACID) [Concomitant]
  6. LOCHOL (FLUVASTATIN SODIUM) (FLUVASTATIN SODIUM) [Concomitant]
  7. ALLOPURINOL [Concomitant]
  8. VERAPAMIL HYDROCHLORIDE [Concomitant]
  9. GASTER D (FAMOTIDINE) (FAMOTIDINE) [Concomitant]

REACTIONS (1)
  - ANGINA PECTORIS [None]
